FAERS Safety Report 8230587-2 (Version None)
Quarter: 2012Q1

REPORT INFORMATION
  Report Type: 
  Country: None (occurrence: None)
  Receive Date: 20120314
  Receipt Date: 20120227
  Transmission Date: 20120608
  Serious: Yes (Hospitalization)
  Sender: FDA-Public Use
  Company Number: 2012MZ000076

PATIENT
  Age: 44 Year
  Sex: Female
  Weight: 57 kg

DRUGS (2)
  1. BOTULINUM TOXIN TYPE A [Suspect]
     Indication: SKIN COSMETIC PROCEDURE
     Dosage: 40 IU;X1;
  2. BOTULINUM TOXIN TYPE A [Suspect]
     Indication: SKIN WRINKLING
     Dosage: 40 IU;X1;

REACTIONS (8)
  - DRY MOUTH [None]
  - ABDOMINAL PAIN [None]
  - COORDINATION ABNORMAL [None]
  - FATIGUE [None]
  - NAUSEA [None]
  - GASTROINTESTINAL VIRAL INFECTION [None]
  - PARAESTHESIA [None]
  - HEADACHE [None]
